FAERS Safety Report 9680350 (Version 3)
Quarter: 2016Q1

REPORT INFORMATION
  Report Type: Report from Study
  Country: US (occurrence: US)
  Receive Date: 20131111
  Receipt Date: 20160110
  Transmission Date: 20160526
  Serious: Yes (Other)
  Sender: FDA-Public Use
  Company Number: PHHO2013US012675

PATIENT
  Age: 63 Year
  Sex: Male
  Weight: 126 kg

DRUGS (14)
  1. AFINITOR [Suspect]
     Active Substance: EVEROLIMUS
     Indication: METASTATIC MALIGNANT MELANOMA
     Dosage: 5 MG, QD (M,W,F- THREE TIMES WEEKLY)
     Route: 048
     Dates: start: 20130306, end: 20130919
  2. AFINITOR [Suspect]
     Active Substance: EVEROLIMUS
     Dosage: 5 MG, QD (M,W,F- THREE TIMES WEEKLY)
     Route: 048
     Dates: start: 20131005, end: 20131104
  3. AVASTIN [Suspect]
     Active Substance: BEVACIZUMAB
     Indication: METASTATIC MALIGNANT MELANOMA
     Dosage: 10 MG/KG, (OVER 90 MINUTES, DAYS 1 AND 15)
     Route: 042
     Dates: start: 20130306, end: 20130306
  4. TAPENTADOL [Concomitant]
     Active Substance: TAPENTADOL
     Indication: PRODUCT USED FOR UNKNOWN INDICATION
     Route: 065
  5. AVASTIN [Suspect]
     Active Substance: BEVACIZUMAB
     Dosage: 10 MG/KG, (OVER 90 MINUTES, DAYS 1 AND 15)
     Route: 042
     Dates: start: 20130918, end: 20130918
  6. TAXOL [Suspect]
     Active Substance: PACLITAXEL
     Indication: METASTATIC MALIGNANT MELANOMA
     Dosage: 80 MG/M2, (OVER 60 MINUTES, DAYS 1, 8, AND 15)
     Route: 042
     Dates: start: 20130306
  7. LISINOPRIL HYDROCHLOROTHIOAZIDE [Concomitant]
     Indication: PRODUCT USED FOR UNKNOWN INDICATION
     Route: 065
  8. OMEPRAZOLE. [Concomitant]
     Active Substance: OMEPRAZOLE
     Indication: PRODUCT USED FOR UNKNOWN INDICATION
     Route: 065
  9. TAXOL [Suspect]
     Active Substance: PACLITAXEL
     Dosage: 40 MG/M2, (OVER 60 MINUTES, DAYS 1, 8, AND 15)
     Route: 042
     Dates: start: 20131022, end: 20131104
  10. CARBOPLATIN. [Suspect]
     Active Substance: CARBOPLATIN
     Indication: METASTATIC MALIGNANT MELANOMA
     Dosage: OVER 30 MINUTES, DAY 1
     Route: 042
     Dates: start: 20130306, end: 20131104
  11. TAXOL [Suspect]
     Active Substance: PACLITAXEL
     Dosage: 40 MG/M2, (OVER 60 MINUTES, DAYS 1, 8, AND 15)
     Route: 042
     Dates: start: 20131003
  12. ONDANSETRON [Concomitant]
     Active Substance: ONDANSETRON
     Indication: PRODUCT USED FOR UNKNOWN INDICATION
     Route: 065
  13. TAXOL [Suspect]
     Active Substance: PACLITAXEL
     Dosage: 40 MG/M2, (OVER 60 MINUTES, DAYS 1, 8, AND 15)
     Route: 042
     Dates: end: 20130918
  14. AVASTIN [Suspect]
     Active Substance: BEVACIZUMAB
     Dosage: 10 MG/KG, (OVER 90 MINUTES, DAYS 1 AND 15)
     Route: 042
     Dates: start: 20131022, end: 20131104

REACTIONS (1)
  - Pancreatitis [Unknown]

NARRATIVE: CASE EVENT DATE: 20131008
